FAERS Safety Report 4667085-9 (Version None)
Quarter: 2005Q2

REPORT INFORMATION
  Report Type: 
  Country: None (occurrence: None)
  Receive Date: 20050520
  Receipt Date: 20050223
  Transmission Date: 20051028
  Serious: Yes (Other)
  Sender: FDA-Public Use
  Company Number: PHBS2005BE02821

PATIENT
  Age: 55 Year
  Sex: Female

DRUGS (4)
  1. THALIDOMIDE [Concomitant]
  2. MAGNESIUM [Concomitant]
  3. TENORMIN [Concomitant]
  4. ZOMETA [Suspect]
     Route: 065

REACTIONS (3)
  - BONE INFECTION [None]
  - BONE LESION [None]
  - WOUND DEBRIDEMENT [None]
